FAERS Safety Report 24388188 (Version 1)
Quarter: 2024Q4

REPORT INFORMATION
  Report Type: Spontaneous
  Country: US (occurrence: None)
  Receive Date: 20241002
  Receipt Date: 20241002
  Transmission Date: 20250115
  Serious: Yes (Death, Hospitalization)
  Sender: Public
  Company Number: None

PATIENT
  Sex: Male
  Weight: 51.5 kg

DRUGS (1)
  1. CISPLATIN [Suspect]
     Active Substance: CISPLATIN

REACTIONS (11)
  - Disease progression [None]
  - Haemodynamic instability [None]
  - Haematemesis [None]
  - Lung disorder [None]
  - Laryngeal disorder [None]
  - Tumour haemorrhage [None]
  - Dyspnoea [None]
  - Oxygen saturation decreased [None]
  - Pupil fixed [None]
  - Pulse absent [None]
  - Respiratory arrest [None]

NARRATIVE: CASE EVENT DATE: 20240216
